FAERS Safety Report 5498091-2 (Version None)
Quarter: 2007Q4

REPORT INFORMATION
  Report Type: 
  Country: None (occurrence: None)
  Receive Date: 20071025
  Receipt Date: 20070423
  Transmission Date: 20080405
  Serious: Yes (Other)
  Sender: FDA-Public Use
  Company Number: US-SANOFI-SYNTHELABO-A03200607503

PATIENT
  Sex: Male
  Weight: 86.2 kg

DRUGS (3)
  1. PLAVIX [Suspect]
     Indication: DRUG USE FOR UNKNOWN INDICATION
     Route: 048
     Dates: start: 20050101, end: 20060101
  2. PLAVIX [Suspect]
     Route: 048
     Dates: start: 20060101
  3. CLOPIDOGREL [Suspect]
     Route: 048
     Dates: start: 20060101, end: 20060101

REACTIONS (3)
  - ARTERIAL RUPTURE [None]
  - CONSTIPATION [None]
  - FLATULENCE [None]
